FAERS Safety Report 14901823 (Version 28)
Quarter: 2020Q3

REPORT INFORMATION
  Report Type: Spontaneous
  Country: CA (occurrence: CA)
  Receive Date: 20180516
  Receipt Date: 20200813
  Transmission Date: 20201102
  Serious: Yes (Hospitalization)
  Sender: FDA-Public Use
  Company Number: CA-CELLTRION INC.-2018CA019531

PATIENT

DRUGS (35)
  1. INFLECTRA [Suspect]
     Active Substance: INFLIXIMAB-DYYB
     Dosage: 10 MG/KG, EVERY 4 WEEKS FOR 3 MONTHS THEN EVERY 6 WEEKS
     Route: 042
     Dates: start: 20181121, end: 20181121
  2. INFLECTRA [Suspect]
     Active Substance: INFLIXIMAB-DYYB
     Dosage: 10 MG/KG, EVERY 4 WEEKS
     Route: 042
     Dates: start: 20181218, end: 20181218
  3. INFLECTRA [Suspect]
     Active Substance: INFLIXIMAB-DYYB
     Dosage: 10 MG/KG, EVERY 6 WEEKS
     Route: 042
     Dates: end: 20200102
  4. INFLECTRA [Suspect]
     Active Substance: INFLIXIMAB-DYYB
     Dosage: 700 MG, AT 2, 6 WEEKS THEN EVERY 8 WEEKS
     Route: 042
     Dates: start: 20181026, end: 20181026
  5. INFLECTRA [Suspect]
     Active Substance: INFLIXIMAB-DYYB
     Dosage: 10 MG/KG, EVERY 4 WEEKS
     Route: 042
     Dates: start: 20190114, end: 20190114
  6. INFLECTRA [Suspect]
     Active Substance: INFLIXIMAB-DYYB
     Dosage: 10 MG/KG, EVERY 6 WEEKS
     Route: 042
     Dates: start: 20190408, end: 20190408
  7. INFLECTRA [Suspect]
     Active Substance: INFLIXIMAB-DYYB
     Dosage: 10 MG/KG, EVERY 6 WEEKS
     Route: 042
     Dates: start: 20190812, end: 20190812
  8. INFLECTRA [Suspect]
     Active Substance: INFLIXIMAB-DYYB
     Dosage: 10 MG/KG  EVERY 6 WEEKS
     Route: 042
     Dates: start: 20200506
  9. SYNTHROID [Concomitant]
     Active Substance: LEVOTHYROXINE SODIUM
     Dosage: UNK
     Route: 065
  10. ELIQUIS [Concomitant]
     Active Substance: APIXABAN
     Dosage: UNK
     Route: 065
  11. INFLECTRA [Suspect]
     Active Substance: INFLIXIMAB-DYYB
     Indication: CROHN^S DISEASE
     Dosage: 700 MG, AT 2, 6 WEEKS THEN EVERY 8 WEEKS
     Route: 042
     Dates: start: 20180326, end: 20180326
  12. INFLECTRA [Suspect]
     Active Substance: INFLIXIMAB-DYYB
     Dosage: 700 MG, AT 2, 6 WEEKS THEN EVERY 8 WEEKS
     Route: 042
     Dates: start: 20180409
  13. INFLECTRA [Suspect]
     Active Substance: INFLIXIMAB-DYYB
     Dosage: 700 MG, AT 2, 6 WEEKS THEN EVERY 8 WEEKS
     Route: 042
     Dates: end: 20180409
  14. CALCIUM [Concomitant]
     Active Substance: CALCIUM
     Dosage: UNK
     Route: 065
  15. RESTORIL [Concomitant]
     Active Substance: TEMAZEPAM
     Dosage: UNK
     Route: 065
  16. INFLECTRA [Suspect]
     Active Substance: INFLIXIMAB-DYYB
     Dosage: 700 MG, AT 2, 6 WEEKS THEN EVERY 8 WEEKS
     Route: 042
     Dates: start: 20180507, end: 20180507
  17. INFLECTRA [Suspect]
     Active Substance: INFLIXIMAB-DYYB
     Dosage: 700 MG, AT 2, 6 WEEKS THEN EVERY 8 WEEKS
     Route: 042
     Dates: start: 20180828, end: 20180828
  18. INFLECTRA [Suspect]
     Active Substance: INFLIXIMAB-DYYB
     Dosage: 10 MG/KG, EVERY 4 WEEKS
     Route: 042
     Dates: start: 20190225, end: 20190225
  19. INFLECTRA [Suspect]
     Active Substance: INFLIXIMAB-DYYB
     Dosage: 10 MG/KG, EVERY 6 WEEKS
     Route: 042
     Dates: start: 20191104, end: 20191104
  20. INFLECTRA [Suspect]
     Active Substance: INFLIXIMAB-DYYB
     Dosage: 10 MG/KG, EVERY 6 WEEKS
     Route: 042
     Dates: start: 20191216, end: 20191216
  21. INFLECTRA [Suspect]
     Active Substance: INFLIXIMAB-DYYB
     Dosage: 10 MG/KG, EVERY 6 WEEKS
     Route: 042
     Dates: start: 20200102
  22. SOLU?CORTEF [Concomitant]
     Active Substance: HYDROCORTISONE SODIUM SUCCINATE
     Dosage: UNK
     Route: 065
     Dates: start: 20180323
  23. SYNTHROID [Concomitant]
     Active Substance: LEVOTHYROXINE SODIUM
     Dosage: UNK
     Route: 065
  24. VANCOMYCIN [Concomitant]
     Active Substance: VANCOMYCIN
     Dosage: UNK
  25. INFLECTRA [Suspect]
     Active Substance: INFLIXIMAB-DYYB
     Dosage: 700 MG, AT 2, 6 WEEKS THEN EVERY 8 WEEKS
     Route: 042
  26. SOLU?CORTEF [Concomitant]
     Active Substance: HYDROCORTISONE SODIUM SUCCINATE
     Dosage: UNK
     Route: 065
     Dates: start: 20180323
  27. VENLAFAXINE [Concomitant]
     Active Substance: VENLAFAXINE HYDROCHLORIDE
     Dosage: UNK
     Route: 065
  28. INFLECTRA [Suspect]
     Active Substance: INFLIXIMAB-DYYB
     Dosage: 10 MG/KG, EVERY 6 WEEKS
     Route: 042
     Dates: start: 20200211, end: 20200211
  29. INFLECTRA [Suspect]
     Active Substance: INFLIXIMAB-DYYB
     Dosage: 10 MG/KG  EVERY 6 WEEKS
     Route: 042
     Dates: start: 20200617
  30. CORTISONE [Concomitant]
     Active Substance: CORTISONE
     Dosage: UNK
     Route: 048
  31. INFLECTRA [Suspect]
     Active Substance: INFLIXIMAB-DYYB
     Dosage: 700 MG, Q, 0, 2, 6 WEEKS THEN EVERY 8 WEEKS
     Route: 042
     Dates: start: 20180326, end: 20181026
  32. INFLECTRA [Suspect]
     Active Substance: INFLIXIMAB-DYYB
     Dosage: 700 MG, AT 2, 6 WEEKS THEN EVERY 8 WEEKS
     Route: 042
     Dates: start: 20180703, end: 20180703
  33. INFLECTRA [Suspect]
     Active Substance: INFLIXIMAB-DYYB
     Dosage: 10 MG/KG, EVERY 6 WEEKS
     Route: 042
     Dates: start: 20190521, end: 20190521
  34. INFLECTRA [Suspect]
     Active Substance: INFLIXIMAB-DYYB
     Dosage: 10 MG/KG, EVERY 6 WEEKS
     Route: 042
     Dates: start: 20190702, end: 20190702
  35. INFLECTRA [Suspect]
     Active Substance: INFLIXIMAB-DYYB
     Dosage: 10 MG/KG  EVERY 6 WEEKS
     Route: 042
     Dates: start: 20200731

REACTIONS (24)
  - Decreased appetite [Unknown]
  - Blood pressure fluctuation [Unknown]
  - Weight increased [Unknown]
  - Intentional product use issue [Unknown]
  - Weight decreased [Recovered/Resolved]
  - Arthralgia [Not Recovered/Not Resolved]
  - Blood pressure increased [Unknown]
  - Diarrhoea [Recovering/Resolving]
  - Phlebitis [Unknown]
  - Nausea [Unknown]
  - Upper respiratory tract infection [Unknown]
  - Influenza [Recovered/Resolved]
  - Off label use [Unknown]
  - Pruritus [Not Recovered/Not Resolved]
  - Product use issue [Unknown]
  - Therapeutic response shortened [Unknown]
  - Drug level below therapeutic [Unknown]
  - Nasopharyngitis [Unknown]
  - Alopecia [Not Recovered/Not Resolved]
  - Condition aggravated [Recovering/Resolving]
  - Flatulence [Not Recovered/Not Resolved]
  - Incorrect dose administered [Unknown]
  - Fatigue [Unknown]
  - Abdominal pain [Not Recovered/Not Resolved]

NARRATIVE: CASE EVENT DATE: 20180326
